FAERS Safety Report 7642792-4 (Version None)
Quarter: 2011Q3

REPORT INFORMATION
  Report Type: 
  Country: None (occurrence: None)
  Receive Date: 20110728
  Receipt Date: 20110718
  Transmission Date: 20111222
  Serious: Yes (Hospitalization)
  Sender: FDA-Public Use
  Company Number: HU-ABBOTT-11P-076-0836217-00

PATIENT
  Sex: Female
  Weight: 43 kg

DRUGS (8)
  1. HUMIRA [Suspect]
     Indication: CROHN'S DISEASE
     Route: 058
     Dates: start: 20080715, end: 20080715
  2. AZATHIOPRINE [Concomitant]
     Indication: IMMUNOSUPPRESSION
     Dates: start: 20070214
  3. METHYLPREDNISOLONE ACETATE [Concomitant]
     Indication: IMMUNOSUPPRESSION
     Dates: start: 20070207
  4. PANTOPRAZOLE [Concomitant]
     Indication: ULCER
     Dates: start: 20110429
  5. HUMIRA [Suspect]
     Route: 058
     Dates: start: 20080701, end: 20080701
  6. HUMIRA [Suspect]
     Route: 058
     Dates: start: 20080801, end: 20110311
  7. PANTOPRAZOLE [Concomitant]
     Indication: PROPHYLAXIS
  8. BUDESONIDE [Concomitant]
     Indication: IMMUNOSUPPRESSION
     Route: 055

REACTIONS (1)
  - CROHN'S DISEASE [None]
